FAERS Safety Report 6239866-1 (Version None)
Quarter: 2009Q2

REPORT INFORMATION
  Report Type: 
  Country: None (occurrence: None)
  Receive Date: 20090619
  Receipt Date: 20090611
  Transmission Date: 20091009
  Serious: Yes (Hospitalization)
  Sender: FDA-Public Use
  Company Number: RENA-1000453

PATIENT
  Age: 68 Year
  Sex: Male

DRUGS (1)
  1. RENAGEL [Suspect]
     Indication: HYPERPHOSPHATAEMIA
     Dosage: ORAL
     Route: 048
     Dates: start: 20010101

REACTIONS (2)
  - BLOOD GLUCOSE DECREASED [None]
  - MYOCARDIAL INFARCTION [None]
